FAERS Safety Report 18256138 (Version 1)
Quarter: 2020Q3

REPORT INFORMATION
  Report Type: Spontaneous
  Country: DK (occurrence: DK)
  Receive Date: 20200911
  Receipt Date: 20200911
  Transmission Date: 20201103
  Serious: Yes (Hospitalization, Other)
  Sender: FDA-Public Use
  Company Number: DK-BRISTOL-MYERS SQUIBB COMPANY-BMS-2020-073678

PATIENT
  Age: 88 Year
  Sex: Female

DRUGS (8)
  1. ISOPTIN [Concomitant]
     Active Substance: VERAPAMIL HYDROCHLORIDE
     Indication: HYPERTENSION
     Dosage: 120 MILLIGRAM, PER DAY
     Route: 048
     Dates: start: 20170601
  2. TOILAX [Concomitant]
     Active Substance: BISACODYL
     Indication: CONSTIPATION
     Dosage: 10 MILLIGRAM, PER DAY
     Route: 048
     Dates: start: 20150325
  3. OXAPAX [Concomitant]
     Active Substance: OXAZEPAM
     Indication: SEDATIVE THERAPY
     Dosage: 7.5 MILLIGRAM, PER DAY
     Route: 048
     Dates: start: 20150504
  4. ELIQUIS [Suspect]
     Active Substance: APIXABAN
     Indication: DEEP VEIN THROMBOSIS
     Dosage: 10 MILLIGRAM, PER DAY
     Route: 048
     Dates: start: 20200821, end: 20200827
  5. OXYCONTIN [Concomitant]
     Active Substance: OXYCODONE HYDROCHLORIDE
     Indication: PAIN
     Dosage: 20 MILLIGRAM, PER DAY
     Route: 048
     Dates: start: 20161118
  6. FURIX [Concomitant]
     Indication: DIURETIC THERAPY
     Dosage: 40 MILLIGRAM, PER DAY
     Route: 048
     Dates: start: 20200821
  7. PANTOPRAZOL [PANTOPRAZOLE] [Concomitant]
     Active Substance: PANTOPRAZOLE
     Indication: GASTROOESOPHAGEAL REFLUX DISEASE
     Dosage: 40 MILLIGRAM, PER DAY
     Route: 048
     Dates: start: 20131125
  8. COMBAR [Concomitant]
     Active Substance: MIRTAZAPINE
     Indication: DEPRESSION
     Dosage: 15 MILLIGRAM, PER DAY
     Route: 048
     Dates: start: 20170301

REACTIONS (1)
  - Acute kidney injury [Not Recovered/Not Resolved]

NARRATIVE: CASE EVENT DATE: 20200827
